FAERS Safety Report 7751806-2 (Version None)
Quarter: 2011Q3

REPORT INFORMATION
  Report Type: 
  Country: None (occurrence: None)
  Receive Date: 20110915
  Receipt Date: 20110912
  Transmission Date: 20111222
  Serious: Yes (Death)
  Sender: FDA-Public Use
  Company Number: US-RANBAXY-2011US-47650

PATIENT
  Age: 40 Year
  Sex: Male

DRUGS (1)
  1. ACETAMINOPHEN [Suspect]
     Indication: PRODUCT USED FOR UNKNOWN INDICATION
     Dosage: UNK, UNK
     Route: 048

REACTIONS (5)
  - RENAL TUBULAR NECROSIS [None]
  - OVERDOSE [None]
  - HEPATIC NECROSIS [None]
  - INTENTIONAL DRUG MISUSE [None]
  - MULTI-ORGAN FAILURE [None]
